FAERS Safety Report 18208797 (Version 6)
Quarter: 2022Q3

REPORT INFORMATION
  Report Type: Report from Study
  Country: US (occurrence: US)
  Receive Date: 20200828
  Receipt Date: 20220718
  Transmission Date: 20221026
  Serious: Yes (Hospitalization, Other)
  Sender: FDA-Public Use
  Company Number: None

PATIENT
  Age: 71 Year
  Sex: Male

DRUGS (6)
  1. ENTRESTO [Suspect]
     Active Substance: SACUBITRIL\VALSARTAN
     Indication: Product used for unknown indication
     Dosage: UNK, BID
     Route: 048
  2. METOPROLOL [Suspect]
     Active Substance: METOPROLOL
     Indication: Product used for unknown indication
     Dosage: 100 MG, QD
     Route: 065
  3. METOPROLOL [Suspect]
     Active Substance: METOPROLOL
     Dosage: 150 MG (100 MG IN AM AND 50 MG IN THE EVENING)
     Route: 065
  4. METOPROLOL [Suspect]
     Active Substance: METOPROLOL
     Dosage: 50 MG, BID
     Route: 065
  5. FUROSEMIDE [Suspect]
     Active Substance: FUROSEMIDE
     Indication: Product used for unknown indication
     Dosage: 40 MG, UNKNOWN
     Route: 065
  6. FUROSEMIDE [Suspect]
     Active Substance: FUROSEMIDE
     Dosage: 20 MG, UNKNOWN
     Route: 065

REACTIONS (17)
  - Atrial fibrillation [Unknown]
  - Heart rate decreased [Unknown]
  - Feeling abnormal [Unknown]
  - Pneumonia viral [Unknown]
  - Ulcer [Unknown]
  - Haemorrhage [Unknown]
  - Haematochezia [Unknown]
  - Faeces discoloured [Unknown]
  - Ejection fraction decreased [Unknown]
  - Hypotension [Recovered/Resolved]
  - Hip fracture [Unknown]
  - Prostatomegaly [Unknown]
  - Nasal disorder [Unknown]
  - Weight decreased [Unknown]
  - Dehydration [Unknown]
  - Orthostatic hypotension [Unknown]
  - Dizziness [Unknown]

NARRATIVE: CASE EVENT DATE: 20200827
